FAERS Safety Report 12124256 (Version 1)
Quarter: 2016Q1

REPORT INFORMATION
  Report Type: Spontaneous
  Country: US (occurrence: None)
  Receive Date: 20160226
  Receipt Date: 20160226
  Transmission Date: 20160526
  Serious: Yes (Disabling)
  Sender: FDA-Public Use
  Company Number: None

PATIENT
  Age: 33 Year
  Sex: Female
  Weight: 56.7 kg

DRUGS (1)
  1. MIRVASO [Suspect]
     Active Substance: BRIMONIDINE TARTRATE
     Indication: ROSACEA
     Dosage: 1 PEA-SIZED AMOUNT ONCE DAILY TOPICAL CREAM
     Route: 061
     Dates: start: 20160102, end: 20160102

REACTIONS (5)
  - Ocular rosacea [None]
  - Rosacea [None]
  - Flushing [None]
  - Dry eye [None]
  - Discomfort [None]

NARRATIVE: CASE EVENT DATE: 20160102
